FAERS Safety Report 5668688-5 (Version None)
Quarter: 2008Q1

REPORT INFORMATION
  Report Type: 
  Country: None (occurrence: None)
  Receive Date: 20080312
  Receipt Date: 20080306
  Transmission Date: 20080703
  Serious: Yes (Life-Threatening, Hospitalization)
  Sender: FDA-Public Use
  Company Number: 114-21880-08030429

PATIENT
  Age: 70 Year
  Sex: Male
  Weight: 55 kg

DRUGS (3)
  1. REVLIMID [Suspect]
     Indication: DISEASE PROGRESSION
     Dosage: 25 MG, ORAL
     Route: 048
     Dates: start: 20080219, end: 20080228
  2. TEMAZEPAM [Concomitant]
  3. LOPERAMIDE [Concomitant]

REACTIONS (6)
  - ANAEMIA [None]
  - DIARRHOEA [None]
  - HAEMORRHAGE [None]
  - LEUKOPENIA [None]
  - PLATELET COUNT DECREASED [None]
  - SEPSIS [None]
